FAERS Safety Report 16262442 (Version 1)
Quarter: 2019Q2

REPORT INFORMATION
  Report Type: Spontaneous
  Country: CN (occurrence: CN)
  Receive Date: 20190501
  Receipt Date: 20190501
  Transmission Date: 20190711
  Serious: Yes (Other)
  Sender: FDA-Public Use
  Company Number: CN-BAXTER-2019BAX008424

PATIENT
  Age: 35 Year
  Sex: Female
  Weight: 76 kg

DRUGS (6)
  1. ADENOSINE DISODIUM TRIPHOSPHATE, COENZYME A AND INSULIN [Suspect]
     Active Substance: ADENOSINE TRIPHOSPHATE DISODIUM\COENZYME A\INSULIN
     Indication: NUTRITIONAL SUPPLEMENTATION
  2. VITAMIN C [Suspect]
     Active Substance: ASCORBIC ACID
     Indication: NUTRITIONAL SUPPLEMENTATION
  3. 10% GLUCOSE  INJECTION [Suspect]
     Active Substance: DEXTROSE
     Indication: NUTRITIONAL SUPPLEMENTATION
  4. ADENOSINE DISODIUM TRIPHOSPHATE, COENZYME A AND INSULIN [Suspect]
     Active Substance: ADENOSINE TRIPHOSPHATE DISODIUM\COENZYME A\INSULIN
     Indication: SUPPORTIVE CARE
     Dosage: 2 VIAL
     Route: 041
     Dates: start: 20190419, end: 20190419
  5. VITAMIN C [Suspect]
     Active Substance: ASCORBIC ACID
     Indication: SUPPORTIVE CARE
     Route: 041
     Dates: start: 20190419, end: 20190419
  6. 10% GLUCOSE  INJECTION [Suspect]
     Active Substance: DEXTROSE
     Indication: SUPPORTIVE CARE
     Route: 041
     Dates: start: 20190419, end: 20190419

REACTIONS (5)
  - Tremor [Unknown]
  - Chromaturia [Unknown]
  - Hyperpyrexia [Recovering/Resolving]
  - Feeling cold [Unknown]
  - Urine output decreased [Unknown]

NARRATIVE: CASE EVENT DATE: 20190419
